FAERS Safety Report 5822434-0 (Version None)
Quarter: 2008Q3

REPORT INFORMATION
  Report Type: 
  Country: None (occurrence: None)
  Receive Date: 20080725
  Receipt Date: 20080317
  Transmission Date: 20090109
  Serious: No
  Sender: FDA-Public Use
  Company Number: US-AMGEN-KDL267804

PATIENT
  Sex: Female
  Weight: 119.9 kg

DRUGS (1)
  1. PROCRIT [Suspect]
     Indication: RENAL FAILURE CHRONIC

REACTIONS (4)
  - FLUSHING [None]
  - HEADACHE [None]
  - NAUSEA [None]
  - RASH [None]
